FAERS Safety Report 5208637-7 (Version None)
Quarter: 2007Q1

REPORT INFORMATION
  Report Type: 
  Country: None (occurrence: None)
  Receive Date: 20070116
  Receipt Date: 20070105
  Transmission Date: 20070707
  Serious: Yes (Hospitalization, Other)
  Sender: FDA-Public Use
  Company Number: PHEH2007US00585

PATIENT
  Age: 58 Year
  Sex: Female

DRUGS (2)
  1. MIACALCIN [Suspect]
     Indication: OSTEOPENIA
     Dosage: 200 IU, QD
     Dates: start: 20060101, end: 20060401
  2. MIACALCIN [Suspect]
     Dosage: 200 IU, QD
     Dates: start: 20061201

REACTIONS (5)
  - RECTAL CANCER [None]
  - STOMATITIS [None]
  - SURGERY [None]
  - THROAT IRRITATION [None]
  - THROAT LESION [None]
